FAERS Safety Report 18130125 (Version 1)
Quarter: 2020Q3

REPORT INFORMATION
  Report Type: Spontaneous
  Country: IE (occurrence: IE)
  Receive Date: 20200810
  Receipt Date: 20200810
  Transmission Date: 20201103
  Serious: Yes (Hospitalization, Other)
  Sender: FDA-Public Use
  Company Number: IE-LUPIN PHARMACEUTICALS INC.-2020-04290

PATIENT
  Age: 36 Year
  Sex: Male

DRUGS (5)
  1. TESTOSTERONE. [Suspect]
     Active Substance: TESTOSTERONE
     Indication: PRODUCT USED FOR UNKNOWN INDICATION
     Dosage: 200 MILLIGRAM FOR SIX WEEKS (ENANTHATE)
     Route: 065
  2. ANASTRAZOLE DENK [Concomitant]
     Active Substance: ANASTROZOLE
     Indication: PRODUCT USED FOR UNKNOWN INDICATION
     Dosage: HALF A TABLET AND TAKE IT THREE TIMES/WEEK ON ALTERNATIVE MONTHS
     Route: 065
  3. TESTOSTERONE. [Suspect]
     Active Substance: TESTOSTERONE
     Dosage: 250 MILLIGRAM ONCE WEEKLY FOR SIX WEEKS (CYPIONATE)
     Route: 065
  4. TESTOSTERONE. [Suspect]
     Active Substance: TESTOSTERONE
     Dosage: 100 MILLIGRAM THRICE WEEKLY FOR 2 WEEKS (PROPIONATE)
     Route: 065
  5. TAMOXIFEN [Concomitant]
     Active Substance: TAMOXIFEN
     Indication: PRODUCT USED FOR UNKNOWN INDICATION
     Dosage: UNK (OCASSIONALLY)
     Route: 065

REACTIONS (2)
  - Cerebrovascular accident [Unknown]
  - Intentional product misuse [Unknown]
